FAERS Safety Report 6857991-9 (Version None)
Quarter: 2010Q3

REPORT INFORMATION
  Report Type: 
  Country: None (occurrence: None)
  Receive Date: 20100719
  Receipt Date: 20100719
  Transmission Date: 20110219
  Serious: Yes (Other)
  Sender: FDA-Public Use
  Company Number: None

PATIENT
  Sex: Female

DRUGS (1)
  1. ALBUMINAR-5 [Suspect]
     Indication: MYASTHENIA GRAVIS
     Dosage: 150G WEEKLY IV
     Route: 042
     Dates: start: 20100708

REACTIONS (4)
  - ABDOMINAL PAIN [None]
  - FLUSHING [None]
  - HYPERHIDROSIS [None]
  - NO THERAPEUTIC RESPONSE [None]
